FAERS Safety Report 4353523-8 (Version None)
Quarter: 2004Q2

REPORT INFORMATION
  Report Type: 
  Country: None (occurrence: None)
  Receive Date: 20040505
  Receipt Date: 20040405
  Transmission Date: 20050107
  Serious: Yes (Hospitalization)
  Sender: FDA-Public Use
  Company Number: US-ROCHE-366027

PATIENT
  Age: 62 Year
  Sex: Male
  Weight: 92 kg

DRUGS (7)
  1. CAPECITABINE [Suspect]
     Route: 065
  2. BLINDED BEVACIZUMAB [Suspect]
     Route: 042
     Dates: start: 20010221
  3. IRINOTECAN [Suspect]
     Route: 042
  4. IRINOTECAN [Suspect]
     Route: 042
  5. FLUOROURACIL [Suspect]
     Route: 042
  6. FLUOROURACIL [Suspect]
     Route: 042
  7. LEUCOVORIN CALCIUM [Suspect]
     Route: 042

REACTIONS (5)
  - DIARRHOEA [None]
  - FEBRILE NEUTROPENIA [None]
  - SPLENIC INFARCTION [None]
  - SPLENIC VEIN THROMBOSIS [None]
  - WHITE BLOOD CELL COUNT DECREASED [None]
